FAERS Safety Report 6049740-1 (Version None)
Quarter: 2009Q1

REPORT INFORMATION
  Report Type: 
  Country: None (occurrence: None)
  Receive Date: 20090121
  Receipt Date: 20080523
  Transmission Date: 20090719
  Serious: Yes (Other)
  Sender: FDA-Public Use
  Company Number: HQWYE698105APR05

PATIENT
  Age: 59 Year
  Sex: Female

DRUGS (6)
  1. PREMPRO [Suspect]
     Indication: OSTEOPOROSIS
     Dosage: ORAL
     Route: 048
  2. PREMPRO [Suspect]
     Indication: PROPHYLAXIS
     Dosage: ORAL
     Route: 048
  3. PREMARIN [Suspect]
     Indication: OSTEOPOROSIS
     Dosage: ORAL
     Route: 048
  4. PREMARIN [Suspect]
     Indication: PROPHYLAXIS
     Dosage: ORAL
     Route: 048
  5. PROVERA [Suspect]
     Indication: OSTEOPOROSIS
     Dosage: ORAL
     Route: 048
  6. PROVERA [Suspect]
     Indication: PROPHYLAXIS
     Dosage: ORAL
     Route: 048

REACTIONS (1)
  - BREAST CANCER [None]
